FAERS Safety Report 5221404-3 (Version None)
Quarter: 2007Q1

REPORT INFORMATION
  Report Type: 
  Country: None (occurrence: None)
  Receive Date: 20070126
  Receipt Date: 20070115
  Transmission Date: 20070707
  Serious: Yes (Disabling)
  Sender: FDA-Public Use
  Company Number: FR-PFIZER INC-2007004664

PATIENT
  Sex: Female

DRUGS (1)
  1. LOGIFLOX [Suspect]
     Indication: URINARY TRACT INFECTION
     Dosage: DAILY DOSE:400MG
     Route: 048
     Dates: start: 20060802, end: 20060804

REACTIONS (3)
  - ANGIOPATHY [None]
  - PARAESTHESIA [None]
  - TENDON RUPTURE [None]
